FAERS Safety Report 7918638-3 (Version None)
Quarter: 2011Q4

REPORT INFORMATION
  Report Type: 
  Country: None (occurrence: None)
  Receive Date: 20111116
  Receipt Date: 20111114
  Transmission Date: 20120403
  Serious: Yes (Hospitalization)
  Sender: FDA-Public Use
  Company Number: AU-ABBOTT-11P-008-0874104-00

PATIENT
  Sex: Male
  Weight: 70 kg

DRUGS (1)
  1. PERINDOPRIL ERBUMINE [Suspect]
     Indication: ESSENTIAL HYPERTENSION
     Dates: start: 20110909, end: 20110916

REACTIONS (2)
  - LIP SWELLING [None]
  - SWELLING FACE [None]
